FAERS Safety Report 5569902-7 (Version None)
Quarter: 2007Q4

REPORT INFORMATION
  Report Type: 
  Country: None (occurrence: None)
  Receive Date: 20071217
  Receipt Date: 20071205
  Transmission Date: 20080405
  Serious: Yes (Other)
  Sender: FDA-Public Use
  Company Number: 021400

PATIENT
  Age: 33 Year
  Sex: Female
  Weight: 59.9 kg

DRUGS (2)
  1. PLAN B [Suspect]
     Indication: POST COITAL CONTRACEPTION
     Dosage: 1 TABLET,Q12HR,ORAL
     Route: 048
     Dates: start: 20070909, end: 20070910
  2. LEXAPRO [Concomitant]

REACTIONS (7)
  - CONCUSSION [None]
  - FATIGUE [None]
  - INJURY [None]
  - MENSTRUATION IRREGULAR [None]
  - METRORRHAGIA [None]
  - OLIGOMENORRHOEA [None]
  - PELVIC PAIN [None]
